FAERS Safety Report 8127013-0 (Version None)
Quarter: 2012Q1

REPORT INFORMATION
  Report Type: 
  Country: None (occurrence: None)
  Receive Date: 20120210
  Receipt Date: 20120131
  Transmission Date: 20120608
  Serious: Yes (Other)
  Sender: FDA-Public Use
  Company Number: US-JNJFOC-20120200517

PATIENT
  Sex: Female
  Weight: 72.58 kg

DRUGS (2)
  1. REMICADE [Suspect]
     Indication: RHEUMATOID ARTHRITIS
     Route: 042
     Dates: start: 20070101
  2. METHOTREXATE [Concomitant]
     Indication: RHEUMATOID ARTHRITIS
     Route: 048
     Dates: start: 20070101

REACTIONS (5)
  - PHARYNGITIS STREPTOCOCCAL [None]
  - SINUSITIS [None]
  - CONJUNCTIVITIS INFECTIVE [None]
  - SCARLET FEVER [None]
  - RHEUMATOID ARTHRITIS [None]
